FAERS Safety Report 8596318-1 (Version None)
Quarter: 2012Q3

REPORT INFORMATION
  Report Type: 
  Country: None (occurrence: None)
  Receive Date: 20120815
  Receipt Date: 20120807
  Transmission Date: 20120928
  Serious: Yes (Hospitalization)
  Sender: FDA-Public Use
  Company Number: FR-ELI_LILLY_AND_COMPANY-FR201208001727

PATIENT
  Sex: Female

DRUGS (10)
  1. B12-VITAMIIN [Concomitant]
  2. METHYLPREDNISOLONE [Concomitant]
     Dosage: UNK
     Dates: start: 20120720
  3. POLARAMINE [Concomitant]
     Dosage: UNK, UNKNOWN
  4. ALIMTA [Suspect]
     Indication: ADENOCARCINOMA
     Dosage: 744 MG, UNKNOWN
     Route: 042
     Dates: start: 20120629, end: 20120720
  5. AVASTIN [Concomitant]
     Dosage: 854 MG, UNKNOWN
     Dates: start: 20120629, end: 20120720
  6. PRAVASTATIN [Concomitant]
  7. ACETAMINOPHEN [Concomitant]
  8. ZOFRAN [Concomitant]
     Dosage: UNK
     Dates: start: 20120720
  9. FOLIC ACID [Concomitant]
  10. ENALAPRIL MALEATE [Concomitant]

REACTIONS (9)
  - EPIGASTRIC DISCOMFORT [None]
  - BRONCHOSPASM [None]
  - HYPERHIDROSIS [None]
  - NAUSEA [None]
  - RASH [None]
  - SYNCOPE [None]
  - RASH ERYTHEMATOUS [None]
  - CONJUNCTIVAL HYPERAEMIA [None]
  - DYSPNOEA [None]
